FAERS Safety Report 8420118-6 (Version None)
Quarter: 2012Q2

REPORT INFORMATION
  Report Type: 
  Country: None (occurrence: None)
  Receive Date: 20120323
  Receipt Date: 20111117
  Transmission Date: 20120825
  Serious: Yes (Hospitalization)
  Sender: FDA-Public Use
  Company Number: 163-21880-11112652

PATIENT
  Age: 42 Year
  Sex: Male

DRUGS (9)
  1. LENALIDOMIDE [Suspect]
     Indication: MULTIPLE MYELOMA
     Dosage: 10 MG, X 21 DAYS, PO
     Route: 048
     Dates: start: 20111017
  2. VASOTEC [Concomitant]
  3. NEORAL [Concomitant]
  4. ACETAMINOPHEN [Concomitant]
  5. AYR SALINE NASAL [Concomitant]
  6. PREDNISONE TAB [Concomitant]
  7. MAGNESIUM SULFATE [Concomitant]
  8. PRILOSEC [Concomitant]
  9. DILTIAZEM HCL [Concomitant]

REACTIONS (1)
  - MENINGITIS VIRAL [None]
